FAERS Safety Report 4270758-3 (Version None)
Quarter: 2004Q1

REPORT INFORMATION
  Report Type: 
  Country: None (occurrence: None)
  Receive Date: 20040113
  Receipt Date: 20031223
  Transmission Date: 20041129
  Serious: No
  Sender: FDA-Public Use
  Company Number: 20031200129

PATIENT
  Age: 71 Year
  Sex: Male

DRUGS (1)
  1. MORPHINE [Suspect]
     Indication: PAIN
     Dosage: 100 CC DAILY

REACTIONS (3)
  - BLOOD PRESSURE DECREASED [None]
  - MEDICATION ERROR [None]
  - SOMNOLENCE [None]
